APPROVED DRUG PRODUCT: RYTARY
Active Ingredient: CARBIDOPA; LEVODOPA
Strength: 23.75MG;95MG
Dosage Form/Route: CAPSULE, EXTENDED RELEASE;ORAL
Application: N203312 | Product #001
Applicant: IMPAX LABORATORIES LLC
Approved: Jan 7, 2015 | RLD: Yes | RS: No | Type: RX

PATENTS:
Patent 9089607 | Expires: Dec 26, 2028
Patent 8377474 | Expires: Dec 26, 2028
Patent 8377474 | Expires: Dec 26, 2028
Patent 8454998 | Expires: Dec 26, 2028
Patent 8454998 | Expires: Dec 26, 2028
Patent 8454998 | Expires: Dec 26, 2028
Patent 9089607 | Expires: Dec 26, 2028
Patent 8557283 | Expires: Dec 26, 2028
Patent 9901640 | Expires: Dec 26, 2028
Patent 8454998 | Expires: Dec 26, 2028
Patent 8557283 | Expires: Dec 26, 2028
Patent 8454998 | Expires: Dec 26, 2028
Patent 9533046 | Expires: Dec 26, 2028
Patent 9463246 | Expires: Dec 26, 2028
Patent 9089608 | Expires: Dec 26, 2028